FAERS Safety Report 9726115 (Version 1)
Quarter: 2013Q4

REPORT INFORMATION
  Report Type: Spontaneous
  Country: US (occurrence: US)
  Receive Date: 20131203
  Receipt Date: 20131203
  Transmission Date: 20140711
  Serious: Yes (Other)
  Sender: FDA-Public Use
  Company Number: US-PFIZER INC-2013338119

PATIENT
  Age: 69 Year
  Sex: Female
  Weight: 77.1 kg

DRUGS (12)
  1. PREMARIN [Suspect]
     Indication: VULVOVAGINAL PAIN
     Dosage: UNK, 2X/WEEK
     Route: 067
     Dates: end: 201311
  2. LEVOTHYROXINE SODIUM [Suspect]
     Indication: THYROID DISORDER
     Dosage: 75 MG, DAILY
  3. METFORMIN HCL [Suspect]
     Indication: DIABETES MELLITUS
     Dosage: UNK, 4X/DAY
  4. CENTRUM SILVER [Suspect]
     Dosage: UNK
  5. SIMVASTATIN [Suspect]
     Dosage: 20 MG, DAILY
  6. LANTUS [Suspect]
     Indication: DIABETES MELLITUS
     Dosage: UNK, DAILY
  7. DIOVAN (VALSARTAN) [Suspect]
     Dosage: UNK, DAILY
  8. AMITIZA [Suspect]
     Dosage: 08 UG, DAILY
  9. ASPIRIN [Suspect]
     Dosage: 81 MG, DAILY
  10. FIBER LAX [Suspect]
     Dosage: 625 MG, 2X/DAY
  11. GLAUCOSTAT [Suspect]
     Indication: FAECES HARD
     Dosage: UNK, AS NEEDED
  12. LIPOFLAVONOID [Suspect]
     Indication: TINNITUS
     Dosage: UNK, 3X/DAY

REACTIONS (12)
  - Colitis [Unknown]
  - Muscular weakness [Unknown]
  - Dysuria [Unknown]
  - Dyspnoea [Unknown]
  - Weight decreased [Unknown]
  - Abdominal pain [Not Recovered/Not Resolved]
  - Vulvovaginal burning sensation [Not Recovered/Not Resolved]
  - Vulvovaginal discomfort [Unknown]
  - Vulvovaginal dryness [Unknown]
  - Vulvovaginal pain [Not Recovered/Not Resolved]
  - Headache [Unknown]
  - Dizziness [Unknown]
